FAERS Safety Report 8784768 (Version 1)
Quarter: 2012Q4

REPORT INFORMATION
  Report Type: Spontaneous
  Country: US (occurrence: None)
  Receive Date: 20120907
  Receipt Date: 20120907
  Transmission Date: 20130627
  Serious: Yes (Disabling, Other)
  Sender: FDA-Public Use
  Company Number: None

PATIENT
  Age: 50 Year
  Sex: Female
  Weight: 81.65 kg

DRUGS (1)
  1. FLUOROMETHOLONE [Suspect]
     Indication: EYES RED
     Dosage: EACH EYE
     Route: 047

REACTIONS (7)
  - Hearing impaired [None]
  - Muscle spasms [None]
  - Sleep disorder [None]
  - Headache [None]
  - Joint swelling [None]
  - Renal impairment [None]
  - Ill-defined disorder [None]
